FAERS Safety Report 5271435-2 (Version None)
Quarter: 2007Q1

REPORT INFORMATION
  Report Type: 
  Country: None (occurrence: None)
  Receive Date: 20061214
  Receipt Date: 20060803
  Transmission Date: 20070707
  Serious: Yes (Hospitalization, Other)
  Sender: FDA-Public Use
  Company Number: 2006096551

PATIENT
  Age: 59 Year
  Sex: Male
  Weight: 89.8122 kg

DRUGS (1)
  1. BEXTRA [Suspect]
     Indication: BACK PAIN
     Dosage: 60 MG (20 MG, 3 IN 1 D)
     Dates: start: 20021230, end: 20050310

REACTIONS (1)
  - MYOCARDIAL INFARCTION [None]
